FAERS Safety Report 4787022-6 (Version None)
Quarter: 2005Q4

REPORT INFORMATION
  Report Type: 
  Country: None (occurrence: None)
  Receive Date: 20051004
  Receipt Date: 20050922
  Transmission Date: 20060501
  Serious: Yes (Hospitalization, Other)
  Sender: FDA-Public Use
  Company Number: US-JNJFOC-20050805740

PATIENT
  Sex: Female
  Weight: 76.66 kg

DRUGS (16)
  1. REMICADE [Suspect]
     Route: 042
  2. REMICADE [Suspect]
     Indication: RHEUMATOID ARTHRITIS
     Route: 042
  3. METHOTREXATE [Suspect]
     Indication: RHEUMATOID ARTHRITIS
     Dosage: 2.5 TABLETS, 10 IN 1 WEEKS
  4. GLYBURIDE [Concomitant]
     Indication: DIABETES MELLITUS
  5. ACTOS [Concomitant]
     Indication: DIABETES MELLITUS
  6. PHENERGAN [Concomitant]
  7. CELEBREX [Concomitant]
  8. PREVACID [Concomitant]
  9. FERROUS SULFATE [Concomitant]
  10. LIPITOR [Concomitant]
  11. ENALAPRIL [Concomitant]
  12. LOPID [Concomitant]
  13. MIRAPEX [Concomitant]
     Dosage: AT BEDTIME
  14. FOLIC ACID [Concomitant]
     Dosage: AT BEDTIME
  15. GLUCOVANCE [Concomitant]
  16. GLUCOVANCE [Concomitant]

REACTIONS (15)
  - AMNESIA [None]
  - ATRIAL TACHYCARDIA [None]
  - BACTERAEMIA [None]
  - BLOOD PRESSURE SYSTOLIC DECREASED [None]
  - CONFUSIONAL STATE [None]
  - DEPRESSION [None]
  - GASTROINTESTINAL HAEMORRHAGE [None]
  - IRON DEFICIENCY ANAEMIA [None]
  - LOSS OF CONSCIOUSNESS [None]
  - LUNG NEOPLASM [None]
  - NIGHT SWEATS [None]
  - PANCYTOPENIA [None]
  - PLEURAL EFFUSION [None]
  - PNEUMONIA [None]
  - SEPSIS [None]
